FAERS Safety Report 6521757-X (Version None)
Quarter: 2009Q4

REPORT INFORMATION
  Report Type: 
  Country: None (occurrence: None)
  Receive Date: 20091229
  Receipt Date: 20091229
  Transmission Date: 20100525
  Serious: Yes (Other)
  Sender: FDA-Public Use
  Company Number: None

PATIENT
  Sex: Female
  Weight: 72 kg

DRUGS (6)
  1. REGULAR INSULIN [Suspect]
     Indication: TYPE 2 DIABETES MELLITUS
     Dosage: 2 UNITS/HR IV CONTINUOUS INFUSION
     Route: 042
     Dates: start: 20090929, end: 20091001
  2. EPINEPHRINE [Concomitant]
  3. MILRINONE [Concomitant]
  4. CEFAZOLIN [Concomitant]
  5. RANITIDINE [Concomitant]
  6. VANCOMYCIN [Concomitant]

REACTIONS (3)
  - BLOOD GLUCOSE DECREASED [None]
  - BLOOD PRESSURE DECREASED [None]
  - NO THERAPEUTIC RESPONSE [None]
